FAERS Safety Report 15436369 (Version 1)
Quarter: 2018Q3

REPORT INFORMATION
  Report Type: Spontaneous
  Country: US (occurrence: US)
  Receive Date: 20180924
  Receipt Date: 20180924
  Transmission Date: 20181010
  Serious: Yes (Hospitalization)
  Sender: FDA-Public Use
  Company Number: None

PATIENT
  Sex: Male

DRUGS (16)
  1. HYDROCO/APAP [Concomitant]
     Active Substance: ACETAMINOPHEN\HYDROCODONE
  2. SYNTHROID [Concomitant]
     Active Substance: LEVOTHYROXINE SODIUM
  3. SPIRONO/HCTZ [Concomitant]
  4. NEULASTA [Suspect]
     Active Substance: PEGFILGRASTIM
     Indication: HODGKIN^S DISEASE NODULAR SCLEROSIS
     Dosage: ?          OTHER FREQUENCY:Q21 DAYS;?
     Route: 058
     Dates: start: 20180906
  5. LASIX [Concomitant]
     Active Substance: FUROSEMIDE
  6. VITAMIN D [Concomitant]
     Active Substance: CHOLECALCIFEROL
  7. GENOTROPIN [Concomitant]
     Active Substance: SOMATROPIN
  8. PANTOPRAZOLE [Concomitant]
     Active Substance: PANTOPRAZOLE
  9. CHERATUSSIN [Concomitant]
     Active Substance: AMMONIUM CHLORIDE\DEXTROMETHORPHAN\SODIUM CITRATE
  10. CORTEF [Concomitant]
     Active Substance: HYDROCORTISONE
  11. MELOXICAM. [Concomitant]
     Active Substance: MELOXICAM
  12. PROPO?N/APAP [Concomitant]
  13. AVELOX [Concomitant]
     Active Substance: MOXIFLOXACIN HYDROCHLORIDE
  14. PROTONIX [Concomitant]
     Active Substance: PANTOPRAZOLE SODIUM
  15. VICTOZA [Concomitant]
     Active Substance: LIRAGLUTIDE
  16. TRICOR [Concomitant]
     Active Substance: FENOFIBRATE

REACTIONS (1)
  - Hospitalisation [None]
